FAERS Safety Report 13788924 (Version 2)
Quarter: 2017Q3

REPORT INFORMATION
  Report Type: Spontaneous
  Country: JP (occurrence: JP)
  Receive Date: 20170725
  Receipt Date: 20170728
  Transmission Date: 20171127
  Serious: Yes (Life-Threatening)
  Sender: FDA-Public Use
  Company Number: JP-JNJFOC-20170623293

PATIENT
  Age: 84 Year
  Sex: Male

DRUGS (12)
  1. ZYTIGA [Suspect]
     Active Substance: ABIRATERONE ACETATE
     Indication: PROSTATE CANCER
     Route: 048
     Dates: start: 20170622
  2. DIART [Concomitant]
     Active Substance: AZOSEMIDE
     Dosage: AFTER BREAKFAST
     Route: 048
     Dates: start: 20170529
  3. FEBURIC [Concomitant]
     Active Substance: FEBUXOSTAT
     Dosage: AFTER BREAKFAST
     Route: 048
     Dates: start: 20170529
  4. ZYTIGA [Suspect]
     Active Substance: ABIRATERONE ACETATE
     Indication: PROSTATE CANCER
     Dosage: TWO HOURS AFTER LUNCH
     Route: 048
     Dates: end: 20170607
  5. WARFARIN [Concomitant]
     Active Substance: WARFARIN
     Route: 048
     Dates: start: 20170529
  6. SOLACET D [Concomitant]
     Route: 065
  7. ASPENON [Concomitant]
     Active Substance: APRINDINE HYDROCHLORIDE
     Dosage: AFTER BREAKFAST AND DINNER
     Route: 048
     Dates: start: 20170529
  8. NEXIUM [Concomitant]
     Active Substance: ESOMEPRAZOLE MAGNESIUM
     Route: 048
     Dates: end: 20170607
  9. SENNARIDE [Concomitant]
     Active Substance: SENNOSIDES A AND B
     Indication: CONSTIPATION
     Route: 048
     Dates: start: 20170529
  10. DECADRON [Concomitant]
     Active Substance: DEXAMETHASONE
     Route: 048
  11. SAXIZON [Concomitant]
     Active Substance: HYDROCORTISONE SODIUM SUCCINATE
     Route: 065
  12. MAINTATE [Concomitant]
     Active Substance: BISOPROLOL FUMARATE
     Dosage: AFTER BREAKFAST AND DINNER
     Route: 048
     Dates: start: 20170529

REACTIONS (2)
  - Adrenal insufficiency [Recovered/Resolved]
  - Treatment noncompliance [Unknown]

NARRATIVE: CASE EVENT DATE: 20170526
